FAERS Safety Report 5562329-3 (Version None)
Quarter: 2007Q4

REPORT INFORMATION
  Report Type: 
  Country: None (occurrence: None)
  Receive Date: 20071215
  Receipt Date: 20070809
  Transmission Date: 20080405
  Serious: No
  Sender: FDA-Public Use
  Company Number: US-AMGEN-US236949

PATIENT
  Sex: Female

DRUGS (11)
  1. ENBREL [Suspect]
     Indication: RHEUMATOID ARTHRITIS
     Route: 058
     Dates: start: 20050405, end: 20070717
  2. EVISTA [Concomitant]
  3. VESICARE [Concomitant]
  4. SKELAXIN [Concomitant]
  5. LEVSIN [Concomitant]
  6. ZANAFLEX [Concomitant]
  7. KLONOPIN [Concomitant]
  8. ASPIRIN [Concomitant]
  9. RESTORIL [Concomitant]
  10. ZANTAC [Concomitant]
  11. CELEBREX [Concomitant]

REACTIONS (5)
  - LUNG INFECTION [None]
  - SCOLIOSIS [None]
  - SINUSITIS [None]
  - STAPHYLOCOCCAL INFECTION [None]
  - URINARY TRACT INFECTION [None]
